FAERS Safety Report 23787390 (Version 1)
Quarter: 2024Q2

REPORT INFORMATION
  Report Type: Spontaneous
  Country: CH (occurrence: CH)
  Receive Date: 20240426
  Receipt Date: 20240426
  Transmission Date: 20240716
  Serious: Yes (Other)
  Sender: FDA-Public Use
  Company Number: None

PATIENT
  Age: 68 Year
  Sex: Male

DRUGS (13)
  1. BACTRIM [Suspect]
     Active Substance: SULFAMETHOXAZOLE\TRIMETHOPRIM
     Indication: Infection
     Dosage: BACTRIM 80/400 MG I.V.. 6-4-6 VOM 05.02.-08.02.2024
     Route: 042
     Dates: start: 20240205, end: 20240208
  2. AMOXICILLIN\CLAVULANATE POTASSIUM [Suspect]
     Active Substance: AMOXICILLIN\CLAVULANATE POTASSIUM
     Indication: Product used for unknown indication
     Route: 042
     Dates: start: 20240202, end: 20240209
  3. AMOXICILLIN\CLAVULANATE POTASSIUM [Suspect]
     Active Substance: AMOXICILLIN\CLAVULANATE POTASSIUM
     Indication: Product used for unknown indication
     Route: 042
     Dates: start: 20240130, end: 20240202
  4. CLARITHROMYCIN [Suspect]
     Active Substance: CLARITHROMYCIN
     Indication: Infection
     Dosage: 500MG 1-0-1; DURING THE COURSE DOSE REDUCTION DUE TO NI
     Route: 042
     Dates: start: 20240130, end: 20240209
  5. Heparin Braun [Concomitant]
     Indication: Product used for unknown indication
     Dosage: 34800 IE/24H
     Route: 042
  6. ERYTHROCIN [Suspect]
     Active Substance: ERYTHROMYCIN LACTOBIONATE
     Indication: Laxative supportive care
     Dosage: 3 SEPARATED DOSES
     Route: 042
     Dates: start: 20240207, end: 20240208
  7. PANTOPRAZOLE SODIUM [Concomitant]
     Active Substance: PANTOPRAZOLE SODIUM
     Indication: Product used for unknown indication
     Route: 042
  8. SOLU-MEDROL [Concomitant]
     Active Substance: METHYLPREDNISOLONE SODIUM SUCCINATE
     Indication: Product used for unknown indication
     Route: 042
     Dates: start: 20240206, end: 20240211
  9. Paspertin [Concomitant]
     Indication: Product used for unknown indication
     Route: 042
     Dates: start: 20240207
  10. ATRACURIUM LABATEC [Concomitant]
     Indication: Product used for unknown indication
     Dosage: PATIENT-SPECIFIC DOSAGE
     Route: 042
  11. PROPOFOL [Concomitant]
     Active Substance: PROPOFOL
     Indication: Product used for unknown indication
     Dosage: PATIENT-SPECIFIC DOSAGE
     Route: 042
  12. LASIX [Concomitant]
     Active Substance: FUROSEMIDE
     Indication: Product used for unknown indication
     Dosage: 07.02.2024: TOTAL 2X20MG
     Route: 042
     Dates: end: 20240207
  13. Noradrenalin Sintetica [Concomitant]
     Indication: Product used for unknown indication
     Dosage: PATIENT-SPECIFIC DOSAGE
     Route: 042

REACTIONS (2)
  - Tubulointerstitial nephritis [Recovering/Resolving]
  - Rash [Unknown]

NARRATIVE: CASE EVENT DATE: 20240208
